FAERS Safety Report 9490559 (Version 1)
Quarter: 2013Q3

REPORT INFORMATION
  Report Type: Spontaneous
  Country: US (occurrence: US)
  Receive Date: 20130830
  Receipt Date: 20130830
  Transmission Date: 20140515
  Serious: Yes (Hospitalization)
  Sender: FDA-Public Use
  Company Number: US-BAYER-2013-104490

PATIENT
  Age: 39 Year
  Sex: Female

DRUGS (5)
  1. YAZ [Suspect]
  2. AUGMENTIN [Concomitant]
     Dosage: 850 MG, BID
     Dates: start: 20070709
  3. ROCEPHALIN [Concomitant]
     Dosage: 2 INJECTIONS, BY PRIMARY CARE PHYSICIAN
  4. LEVAQUIN [Concomitant]
     Dosage: 500 MG, BID, PRIOR TO HOSPITALIZATION
  5. SYNTHROID [Concomitant]
     Dosage: 75 DAILY, PRIOR TO HOSPITALIZATION

REACTIONS (2)
  - Pulmonary embolism [None]
  - Pelvic venous thrombosis [None]
